FAERS Safety Report 9459559 (Version 2)
Quarter: 2013Q3

REPORT INFORMATION
  Report Type: Spontaneous
  Country: US (occurrence: US)
  Receive Date: 20130815
  Receipt Date: 20130816
  Transmission Date: 20140515
  Serious: No
  Sender: FDA-Public Use
  Company Number: US-PFIZER INC-2013237072

PATIENT
  Age: 24 Year
  Sex: Male
  Weight: 79 kg

DRUGS (2)
  1. EFFEXOR XR [Suspect]
     Indication: DEPRESSION
     Dosage: 150 MG, 1X/DAY
     Route: 048
     Dates: start: 2006
  2. EFFEXOR XR [Suspect]
     Dosage: 150 MG, 2X/DAY
     Route: 048
     Dates: end: 2009

REACTIONS (1)
  - Palpitations [Not Recovered/Not Resolved]
